FAERS Safety Report 5120840-3 (Version None)
Quarter: 2006Q4

REPORT INFORMATION
  Report Type: 
  Country: None (occurrence: None)
  Receive Date: 20061003
  Receipt Date: 20061003
  Transmission Date: 20070319
  Serious: Yes (Disabling)
  Sender: FDA-Public Use
  Company Number: None

PATIENT
  Sex: Male
  Weight: 74.8435 kg

DRUGS (2)
  1. ACCUTANE [Suspect]
     Indication: ACNE
     Dosage: 40 MG 2 X DAILY
     Dates: start: 19921001, end: 19930301
  2. ACCUTANE [Suspect]
     Indication: OILY SKIN
     Dosage: 40 MG 2 X DAILY
     Dates: start: 19921001, end: 19930301

REACTIONS (1)
  - LIVER DISORDER [None]
